FAERS Safety Report 6997988-1 (Version None)
Quarter: 2010Q3

REPORT INFORMATION
  Report Type: 
  Country: None (occurrence: None)
  Receive Date: 20100920
  Receipt Date: 20071203
  Transmission Date: 20110219
  Serious: No
  Sender: FDA-Public Use
  Company Number: US-ASTRAZENECA-2007UW14062

PATIENT
  Age: 32357 Day
  Sex: Male
  Weight: 81.2 kg

DRUGS (27)
  1. SEROQUEL [Suspect]
     Indication: SLEEP DISORDER
     Route: 048
     Dates: start: 20050305, end: 20070501
  2. SEROQUEL [Suspect]
     Indication: DEMENTIA
     Route: 048
     Dates: start: 20050305, end: 20070501
  3. SEROQUEL [Suspect]
     Indication: PSYCHOTIC DISORDER
     Route: 048
     Dates: start: 20050305, end: 20070501
  4. SEROQUEL [Suspect]
     Route: 048
     Dates: start: 20050101
  5. SEROQUEL [Suspect]
     Route: 048
     Dates: start: 20050101
  6. SEROQUEL [Suspect]
     Route: 048
     Dates: start: 20050101
  7. RISPERDAL [Concomitant]
     Dates: start: 20050519, end: 20050619
  8. ZYPREXA [Concomitant]
     Dates: start: 20050909, end: 20051009
  9. HYDRALAZINE HCL [Concomitant]
     Dosage: 150-200 MG
     Dates: start: 19990209
  10. LOTREL [Concomitant]
     Dosage: 520 MG
     Dates: start: 20020829
  11. DYAZIDE [Concomitant]
     Dates: start: 20050306
  12. PROPRANOLOL [Concomitant]
     Dates: start: 20050306
  13. DOXAZOSIN MESYLATE [Concomitant]
     Dates: start: 20050306
  14. PROBENECID AND COLCHICINE [Concomitant]
     Dates: start: 20050306
  15. MINOXIDIL [Concomitant]
     Dates: start: 20050306
  16. BUMEX [Concomitant]
     Dosage: 2-4 MG,DAILY
     Route: 048
     Dates: start: 20050315
  17. REGLAN [Concomitant]
     Indication: GASTROOESOPHAGEAL REFLUX DISEASE
     Dates: start: 20050315
  18. PROTONIX [Concomitant]
     Indication: GASTROOESOPHAGEAL REFLUX DISEASE
     Route: 048
     Dates: start: 20050315
  19. CARDIZEM [Concomitant]
     Route: 048
     Dates: start: 20050608
  20. METOPROLOL [Concomitant]
     Indication: HYPERTENSION
     Route: 048
     Dates: start: 20050101
  21. SINEMET [Concomitant]
     Indication: PARKINSON'S DISEASE
     Dosage: 25/100, 1/2 TABLET BID
     Route: 048
     Dates: start: 20050101
  22. COUMADIN [Concomitant]
     Indication: ANTICOAGULANT THERAPY
     Dates: start: 20050608
  23. NEURONTIN [Concomitant]
     Indication: CONVULSION
     Dates: start: 20050608
  24. LISINOPRIL [Concomitant]
     Dates: start: 20070107
  25. LOPRESSOR [Concomitant]
     Dates: start: 20070108
  26. CARDURA [Concomitant]
     Indication: BLOOD PRESSURE
     Dates: start: 20050718
  27. NORVASC [Concomitant]
     Indication: HYPERTENSION
     Dates: start: 20050718

REACTIONS (3)
  - DEMENTIA [None]
  - SENILE DEMENTIA [None]
  - TYPE 2 DIABETES MELLITUS [None]
